FAERS Safety Report 7409660-4 (Version None)
Quarter: 2011Q1

REPORT INFORMATION
  Report Type: 
  Country: None (occurrence: None)
  Receive Date: 20110301
  Receipt Date: 20100520
  Transmission Date: 20110831
  Serious: Yes (Hospitalization, Other)
  Sender: FDA-Public Use
  Company Number: RB-09702-2010

PATIENT
  Age: 28 Year
  Sex: Male

DRUGS (4)
  1. KLONOPIN [Suspect]
     Indication: ANXIETY
     Dosage: (ORAL)
     Route: 048
     Dates: start: 20091201
  2. SUBOXONE [Suspect]
     Indication: DRUG DEPENDENCE
     Dosage: (8 MG SUBLINGUAL), (8 MG TID SUBLINGUAL)
     Route: 060
     Dates: end: 20050101
  3. SUBOXONE [Suspect]
     Indication: DRUG DEPENDENCE
     Dosage: (8 MG SUBLINGUAL), (8 MG TID SUBLINGUAL)
     Route: 060
     Dates: start: 20091001
  4. METHADONE HCL [Suspect]
     Indication: DRUG DEPENDENCE
     Dosage: (ORAL)
     Route: 048

REACTIONS (2)
  - OVERDOSE [None]
  - SLUGGISHNESS [None]
